FAERS Safety Report 6488279-6 (Version None)
Quarter: 2009Q4

REPORT INFORMATION
  Report Type: 
  Country: None (occurrence: None)
  Receive Date: 20091210
  Receipt Date: 20090826
  Transmission Date: 20100525
  Serious: No
  Sender: FDA-Public Use
  Company Number: US-AMGEN-KDL361922

PATIENT
  Sex: Male
  Weight: 78.8 kg

DRUGS (4)
  1. ENBREL [Suspect]
     Indication: JUVENILE ARTHRITIS
     Route: 058
     Dates: start: 20090708
  2. NABUMETONE [Concomitant]
     Dates: start: 20090420
  3. FOLIC ACID [Concomitant]
     Dates: start: 20090420
  4. ZANTAC [Concomitant]
     Dates: start: 20090420

REACTIONS (3)
  - COUGH [None]
  - PAIN IN EXTREMITY [None]
  - PYREXIA [None]
